FAERS Safety Report 21995567 (Version 1)
Quarter: 2023Q1

REPORT INFORMATION
  Report Type: Spontaneous
  Country: US (occurrence: None)
  Receive Date: 20230214
  Receipt Date: 20230214
  Transmission Date: 20230418
  Serious: No
  Sender: FDA-Public Use
  Company Number: None

PATIENT
  Sex: Female
  Weight: 83.25 kg

DRUGS (9)
  1. BUPROPION HYDROCHLORIDE XL [Suspect]
     Active Substance: BUPROPION HYDROCHLORIDE
     Indication: Anxiety
     Dosage: OTHER QUANTITY : 1 TABLET(S);?
     Route: 048
  2. BUPROPION HYDROCHLORIDE XL [Suspect]
     Active Substance: BUPROPION HYDROCHLORIDE
     Indication: Depression
  3. EFFEXOR [Concomitant]
     Active Substance: VENLAFAXINE HYDROCHLORIDE
  4. BUPROPION [Concomitant]
     Active Substance: BUPROPION
  5. VISTARIL [Concomitant]
     Active Substance: HYDROXYZINE PAMOATE
  6. Multivitamin with Omega 3 [Concomitant]
  7. CALCIUM [Concomitant]
     Active Substance: CALCIUM
  8. BIOTIN [Concomitant]
     Active Substance: BIOTIN
  9. COLLAGEN [Concomitant]
     Active Substance: COLLAGEN

REACTIONS (7)
  - Migraine [None]
  - Product physical issue [None]
  - Nausea [None]
  - Decreased appetite [None]
  - Mood swings [None]
  - Manufacturing issue [None]
  - Product dose omission in error [None]
